FAERS Safety Report 4575320-0 (Version None)
Quarter: 2005Q1

REPORT INFORMATION
  Report Type: 
  Country: None (occurrence: None)
  Receive Date: 20050209
  Receipt Date: 20041221
  Transmission Date: 20050727
  Serious: Yes (Death, Life-Threatening, Other)
  Sender: FDA-Public Use
  Company Number: GB-JNJFOC-20041106064

PATIENT
  Sex: Female
  Weight: 82 kg

DRUGS (11)
  1. REMICADE [Suspect]
     Indication: RHEUMATOID ARTHRITIS
     Route: 042
  2. METHOTREXATE [Concomitant]
  3. DISTAMINE [Concomitant]
  4. VOLTAROL [Concomitant]
  5. CODIS [Concomitant]
  6. CODIS [Concomitant]
  7. CO-PROXAMAL [Concomitant]
  8. CO-PROXAMAL [Concomitant]
  9. ATENOLOL [Concomitant]
  10. BENDROFLUAZIDE [Concomitant]
  11. RISEDRONATE [Concomitant]

REACTIONS (1)
  - AMYOTROPHIC LATERAL SCLEROSIS [None]
